FAERS Safety Report 17885318 (Version 1)
Quarter: 2020Q2

REPORT INFORMATION
  Report Type: Spontaneous
  Country: US (occurrence: US)
  Receive Date: 20200611
  Receipt Date: 20200611
  Transmission Date: 20200714
  Serious: Yes (Other)
  Sender: FDA-Public Use
  Company Number: None

PATIENT
  Age: 30 Year
  Sex: Female
  Weight: 65.25 kg

DRUGS (8)
  1. IPRATROPRIUM BROMIDE [Concomitant]
  2. GABAPENTIN 100MG [Suspect]
     Active Substance: GABAPENTIN
     Indication: MIGRAINE PROPHYLAXIS
     Route: 048
  3. VITAMIN D3 [Concomitant]
     Active Substance: CHOLECALCIFEROL
  4. ZINC. [Concomitant]
     Active Substance: ZINC
  5. OLLY WOMENS VITAMINS [Concomitant]
  6. CETERIZINE [Concomitant]
     Active Substance: CETIRIZINE HYDROCHLORIDE
  7. DYMISTA [Concomitant]
     Active Substance: AZELASTINE HYDROCHLORIDE\FLUTICASONE PROPIONATE
  8. MONTELUKAST [Concomitant]
     Active Substance: MONTELUKAST SODIUM

REACTIONS (2)
  - Aggression [None]
  - Hostility [None]

NARRATIVE: CASE EVENT DATE: 20200609
